FAERS Safety Report 13303220 (Version 1)
Quarter: 2017Q1

REPORT INFORMATION
  Report Type: Spontaneous
  Country: US (occurrence: US)
  Receive Date: 20170307
  Receipt Date: 20170307
  Transmission Date: 20170428
  Serious: No
  Sender: FDA-Public Use
  Company Number: US-ELI_LILLY_AND_COMPANY-US201702010834

PATIENT
  Sex: Female

DRUGS (6)
  1. HUMALOG [Suspect]
     Active Substance: INSULIN LISPRO
     Indication: PRODUCT USED FOR UNKNOWN INDICATION
     Dosage: 4 U, EACH MORNING BEFORE BREAKFAST
     Route: 065
     Dates: start: 201609
  2. HUMALOG [Suspect]
     Active Substance: INSULIN LISPRO
     Dosage: 6 U, EACH EVENING BEFORE DINNER
     Route: 065
     Dates: start: 201609
  3. HUMALOG [Suspect]
     Active Substance: INSULIN LISPRO
     Dosage: 6 U, BEFORE LUNCH
     Route: 065
     Dates: start: 201609
  4. METFORMIN [Concomitant]
     Active Substance: METFORMIN HYDROCHLORIDE
  5. GLIMEPIRIDE. [Concomitant]
     Active Substance: GLIMEPIRIDE
  6. LANTUS [Concomitant]
     Active Substance: INSULIN GLARGINE

REACTIONS (1)
  - Laboratory test abnormal [Unknown]

NARRATIVE: CASE EVENT DATE: 201702
